FAERS Safety Report 14846381 (Version 1)
Quarter: 2018Q2

REPORT INFORMATION
  Report Type: Spontaneous
  Country: US (occurrence: US)
  Receive Date: 20180504
  Receipt Date: 20180504
  Transmission Date: 20180711
  Serious: Yes (Death, Hospitalization)
  Sender: FDA-Public Use
  Company Number: US-ROCHE-2118550

PATIENT
  Age: 57 Year

DRUGS (1)
  1. AVASTIN [Suspect]
     Active Substance: BEVACIZUMAB
     Indication: PRODUCT USED FOR UNKNOWN INDICATION
     Dosage: ONGOING:UNKNOWN
     Route: 065

REACTIONS (3)
  - Death [Fatal]
  - Abdominal pain [Unknown]
  - Sepsis [Unknown]

NARRATIVE: CASE EVENT DATE: 20180406
